FAERS Safety Report 19739597 (Version 2)
Quarter: 2021Q3

REPORT INFORMATION
  Report Type: Spontaneous
  Country: US (occurrence: US)
  Receive Date: 20210823
  Receipt Date: 20210831
  Transmission Date: 20211014
  Serious: Yes (Other)
  Sender: FDA-Public Use
  Company Number: US-B.I. PHARMACEUTICALS,INC./RIDGEFIELD-2021-BI-122827

PATIENT
  Sex: Female

DRUGS (1)
  1. OFEV [Suspect]
     Active Substance: NINTEDANIB
     Indication: PRODUCT USED FOR UNKNOWN INDICATION
     Dosage: 300 MG DAILY

REACTIONS (17)
  - Nausea [Unknown]
  - Headache [Unknown]
  - Vomiting [Unknown]
  - Heart rate increased [Unknown]
  - Gastrointestinal disorder [Unknown]
  - Cough [Unknown]
  - Dehydration [Unknown]
  - Gastrointestinal pain [Unknown]
  - Swelling [Unknown]
  - Abdominal pain upper [Unknown]
  - Fatigue [Unknown]
  - Intentional underdose [Unknown]
  - Implantable defibrillator insertion [Unknown]
  - Decreased appetite [Unknown]
  - Diarrhoea [Unknown]
  - Abdominal discomfort [Unknown]
  - Gastric disorder [Unknown]
